FAERS Safety Report 7093582-5 (Version None)
Quarter: 2010Q4

REPORT INFORMATION
  Report Type: 
  Country: None (occurrence: None)
  Receive Date: 20101101
  Receipt Date: 20101018
  Transmission Date: 20110411
  Serious: Yes (Hospitalization, Other)
  Sender: FDA-Public Use
  Company Number: 020640

PATIENT
  Age: 60 Year
  Sex: Female

DRUGS (9)
  1. LEVETIRACETAM [Suspect]
     Indication: CONVULSION
     Dosage: 250 MG BID
  2. MEROPENEM [Suspect]
     Dosage: 1 G BID
  3. VANCOMYCIN [Suspect]
     Dosage: 1 G BID INTRAVENOUS (NOT OTHERWISE SPECIFIED)
     Route: 042
  4. CEFTRIAXONE [Suspect]
     Dosage: 1 G BID INTRAVENOUS (NOT OTHERWISE SPECIFIED)
     Route: 042
  5. METRONIDAZOLE [Suspect]
     Dosage: 500 MG TID INTRAVENOUS (NOT OTHERWISE SPECIFIED)
     Route: 042
  6. GLIPIZIDE [Concomitant]
  7. ATORVASTATIN [Concomitant]
  8. TELMISARTAN [Concomitant]
  9. CALCIUM ACETATE [Concomitant]

REACTIONS (10)
  - ALANINE AMINOTRANSFERASE INCREASED [None]
  - ASPARTATE AMINOTRANSFERASE INCREASED [None]
  - BILIRUBIN CONJUGATED INCREASED [None]
  - BLOOD BILIRUBIN INCREASED [None]
  - BLOOD CREATININE INCREASED [None]
  - CHOLESTATIC LIVER INJURY [None]
  - GAMMA-GLUTAMYLTRANSFERASE INCREASED [None]
  - LEUKOPENIA [None]
  - PROTHROMBIN TIME PROLONGED [None]
  - VANISHING BILE DUCT SYNDROME [None]
